FAERS Safety Report 8496437-4 (Version None)
Quarter: 2012Q3

REPORT INFORMATION
  Report Type: 
  Country: None (occurrence: None)
  Receive Date: 20120709
  Receipt Date: 20120627
  Transmission Date: 20120928
  Serious: Yes (Hospitalization, Other)
  Sender: FDA-Public Use
  Company Number: FR-BRISTOL-MYERS SQUIBB COMPANY-16724866

PATIENT
  Age: 81 Year
  Sex: Female

DRUGS (1)
  1. COUMADIN [Suspect]
     Indication: THROMBOSIS PROPHYLAXIS
     Dosage: COUMADINE 2 MG, SCORED TABLET. INTERRUPTED FEB12,REINTRODUCED 5APR2012,INTERP ON 23APR12
     Route: 048

REACTIONS (4)
  - ANAEMIA [None]
  - PSEUDOMEMBRANOUS COLITIS [None]
  - INTERNATIONAL NORMALISED RATIO INCREASED [None]
  - MELAENA [None]
